FAERS Safety Report 20793640 (Version 1)
Quarter: 2022Q2

REPORT INFORMATION
  Report Type: Report from Study
  Country: KR (occurrence: KR)
  Receive Date: 20220506
  Receipt Date: 20220506
  Transmission Date: 20220721
  Serious: Yes (Hospitalization)
  Sender: FDA-Public Use
  Company Number: US-CELGENE-KOR-20220102337

PATIENT
  Age: 71 Year
  Sex: Male
  Weight: 60 kg

DRUGS (20)
  1. AZACITIDINE [Suspect]
     Active Substance: AZACITIDINE
     Indication: Myelodysplastic syndrome
     Dosage: 7 DAYS WITHIN THE FIRST 9 CALENDAR DAYS PER 28-DAY CYCLE
     Route: 058
     Dates: start: 20210816, end: 20211228
  2. AZACITIDINE [Suspect]
     Active Substance: AZACITIDINE
     Route: 058
     Dates: start: 20220207
  3. VENETOCLAX [Suspect]
     Active Substance: VENETOCLAX
     Indication: Product used for unknown indication
     Dosage: FREQUENCY TEXT: NOT PROVIDED
     Route: 065
  4. PYRIDOXINE [Concomitant]
     Active Substance: PYRIDOXINE
     Indication: Prophylaxis
     Dosage: 50 MILLIGRAM
     Route: 048
     Dates: start: 20210527
  5. SIWONAL [Concomitant]
     Indication: Benign prostatic hyperplasia
     Dosage: .2 MILLIGRAM
     Route: 048
     Dates: start: 20200827
  6. SULFAMETHOXAZOLE\TRIMETHOPRIM [Concomitant]
     Active Substance: SULFAMETHOXAZOLE\TRIMETHOPRIM
     Indication: Pneumonitis
     Dosage: 960 MILLIGRAM
     Route: 048
     Dates: start: 20211104
  7. SULFAMETHOXAZOLE\TRIMETHOPRIM [Concomitant]
     Active Substance: SULFAMETHOXAZOLE\TRIMETHOPRIM
     Indication: Infection prophylaxis
  8. SILCON [Concomitant]
     Indication: Constipation prophylaxis
     Dosage: 1875 MILLIGRAM
     Route: 048
     Dates: start: 20211126
  9. HERBALS [Concomitant]
     Active Substance: HERBALS
     Indication: Prophylaxis
     Dosage: 3 IN 1 D
     Route: 048
  10. HERBALS [Concomitant]
     Active Substance: HERBALS
     Dosage: 90 MILLIGRAM
     Route: 048
     Dates: start: 20211203
  11. HERBALS [Concomitant]
     Active Substance: HERBALS
     Dosage: 30MILLIGRAM
     Route: 048
     Dates: start: 20211203
  12. GRASIN [Concomitant]
     Indication: Prophylaxis
     Dosage: 1 IN 1 D
     Dates: start: 20220104, end: 20220118
  13. Zoylex [Concomitant]
     Indication: Infection prophylaxis
     Dosage: 1600 MILLIGRAM
     Route: 048
     Dates: start: 20210805
  14. FINADRON [Concomitant]
     Indication: Benign prostatic hyperplasia
     Dosage: 5 MILLIGRAM
     Route: 048
     Dates: start: 20201214
  15. KYTRIL [Concomitant]
     Active Substance: GRANISETRON HYDROCHLORIDE
     Indication: Prophylaxis of nausea and vomiting
     Dosage: 1 MILLIGRAM
     Route: 048
     Dates: start: 20210816, end: 20210824
  16. KYTRIL [Concomitant]
     Active Substance: GRANISETRON HYDROCHLORIDE
     Dosage: FREQUENCY TEXT: AS REQUIRED?1 MILLIGRAM
     Route: 048
     Dates: start: 20211011
  17. MAGNESIUM OXIDE [Concomitant]
     Active Substance: MAGNESIUM OXIDE
     Indication: Prophylaxis
     Dosage: FREQUENCY TEXT: AS REQUIRED?500 MILLIGRAM
     Route: 048
     Dates: start: 20210915
  18. TANTUM [Concomitant]
     Active Substance: BENZYDAMINE HYDROCHLORIDE
     Indication: Stomatitis
     Dosage: FREQUENCY TEXT: AS REQUIRED?15 MILLILITER
     Route: 048
     Dates: start: 20210901
  19. MEGESTROL [Concomitant]
     Active Substance: MEGESTROL
     Indication: Prophylaxis
     Dosage: FREQUENCY TEXT: AS REQUIRED?5.2 MILLILITER
     Route: 048
     Dates: start: 20211013
  20. Levoplus [Concomitant]
     Indication: Infection prophylaxis
     Dosage: 750 MILLIGRAM
     Route: 048
     Dates: start: 20211027

REACTIONS (1)
  - Laryngopharyngitis [Recovered/Resolved]

NARRATIVE: CASE EVENT DATE: 20220104
